FAERS Safety Report 13635260 (Version 1)
Quarter: 2017Q2

REPORT INFORMATION
  Report Type: Spontaneous
  Country: US (occurrence: US)
  Receive Date: 20170531
  Receipt Date: 20170531
  Transmission Date: 20170830
  Serious: No
  Sender: FDA-Public Use
  Company Number: US-ASTELLAS-1708319

PATIENT
  Age: 59 Year
  Sex: Female

DRUGS (6)
  1. OXYCODONE HYDROCHLORIDE. [Concomitant]
     Active Substance: OXYCODONE HYDROCHLORIDE
     Route: 065
  2. TARCEVA [Suspect]
     Active Substance: ERLOTINIB HYDROCHLORIDE
     Indication: MALIGNANT MELANOMA
     Route: 048
  3. IBUPROFEN. [Concomitant]
     Active Substance: IBUPROFEN
     Route: 065
  4. FENTANYL. [Concomitant]
     Active Substance: FENTANYL
     Dosage: 50 MCG/HR PATCH
     Route: 065
  5. MONTELUKAST SODIUM. [Concomitant]
     Active Substance: MONTELUKAST SODIUM
     Route: 065
  6. PROAIR HFA [Concomitant]
     Active Substance: ALBUTEROL SULFATE
     Route: 055

REACTIONS (1)
  - Onychoclasis [Unknown]

NARRATIVE: CASE EVENT DATE: 20151108
